FAERS Safety Report 18472575 (Version 1)
Quarter: 2020Q4

REPORT INFORMATION
  Report Type: Spontaneous
  Country: US (occurrence: US)
  Receive Date: 20201105
  Receipt Date: 20201105
  Transmission Date: 20210114
  Serious: Yes (Hospitalization, Other)
  Sender: FDA-Public Use
  Company Number: None

PATIENT
  Age: 26 Year
  Sex: Female
  Weight: 62.14 kg

DRUGS (2)
  1. ANKLE BRACE [Concomitant]
  2. PARAGARD T 380A [Suspect]
     Active Substance: COPPER
     Dates: start: 20190616

REACTIONS (28)
  - Ear discomfort [None]
  - Headache [None]
  - Dyspareunia [None]
  - Micturition urgency [None]
  - Breast tenderness [None]
  - Loss of libido [None]
  - Uterine haemorrhage [None]
  - Vaginal discharge [None]
  - Back pain [None]
  - Contusion [None]
  - Menorrhagia [None]
  - Dizziness [None]
  - Asthenia [None]
  - Hypertrichosis [None]
  - Pelvic pain [None]
  - Vision blurred [None]
  - Dyspnoea exertional [None]
  - Fatigue [None]
  - Depression [None]
  - Vulvovaginal pruritus [None]
  - Pain [None]
  - Acne [None]
  - Muscle spasms [None]
  - Bone pain [None]
  - Vomiting [None]
  - Alopecia [None]
  - Chest pain [None]
  - Abdominal pain upper [None]

NARRATIVE: CASE EVENT DATE: 20191201
